FAERS Safety Report 17274191 (Version 1)
Quarter: 2020Q1

REPORT INFORMATION
  Report Type: Spontaneous
  Country: US (occurrence: US)
  Receive Date: 20200115
  Receipt Date: 20200115
  Transmission Date: 20200409
  Serious: No
  Sender: FDA-Public Use
  Company Number: US-ASTRAZENECA-2019SF67325

PATIENT
  Age: 77 Year
  Sex: Female

DRUGS (1)
  1. DURVALUMAB. [Suspect]
     Active Substance: DURVALUMAB
     Dosage: 10.0MG/KG UNKNOWN
     Route: 042
     Dates: start: 20180406

REACTIONS (5)
  - Cough [Unknown]
  - Rash [Unknown]
  - Dyspnoea [Unknown]
  - Fatigue [Unknown]
  - Colitis [Unknown]

NARRATIVE: CASE EVENT DATE: 201807
